FAERS Safety Report 23155647 (Version 4)
Quarter: 2025Q1

REPORT INFORMATION
  Report Type: Spontaneous
  Country: US (occurrence: US)
  Receive Date: 20231107
  Receipt Date: 20250210
  Transmission Date: 20250409
  Serious: No
  Sender: SANOFI AVENTIS
  Company Number: US-SA-SAC20231030002345

PATIENT
  Age: 58 Year
  Sex: Female
  Weight: 78 kg

DRUGS (3)
  1. DUPIXENT [Suspect]
     Active Substance: DUPILUMAB
     Indication: Asthma
     Dosage: 300 MG, QOW
     Route: 058
     Dates: start: 20240123
  2. ACETAMINOPHEN [Concomitant]
     Active Substance: ACETAMINOPHEN
  3. TRELEGY ELLIPTA [Concomitant]
     Active Substance: FLUTICASONE FUROATE\UMECLIDINIUM BROMIDE\VILANTEROL TRIFENATATE

REACTIONS (7)
  - Peripheral swelling [Unknown]
  - Chest discomfort [Unknown]
  - Cough [Not Recovered/Not Resolved]
  - Burning sensation [Unknown]
  - Nasal congestion [Not Recovered/Not Resolved]
  - Injection site pain [Recovered/Resolved]
  - Inappropriate schedule of product administration [Unknown]
